FAERS Safety Report 5570975-6 (Version None)
Quarter: 2007Q4

REPORT INFORMATION
  Report Type: 
  Country: None (occurrence: None)
  Receive Date: 20071221
  Receipt Date: 20071220
  Transmission Date: 20080405
  Serious: Yes (Other)
  Sender: FDA-Public Use
  Company Number: US-BRISTOL-MYERS SQUIBB COMPANY-14021471

PATIENT

DRUGS (1)
  1. AVAPRO [Suspect]
     Indication: CARDIOVASCULAR DISORDER
     Route: 048

REACTIONS (3)
  - CONVULSION [None]
  - HYPONATRAEMIA [None]
  - PROCEDURAL COMPLICATION [None]
